FAERS Safety Report 16272167 (Version 2)
Quarter: 2019Q2

REPORT INFORMATION
  Report Type: Spontaneous
  Country: TW (occurrence: TW)
  Receive Date: 20190503
  Receipt Date: 20190510
  Transmission Date: 20190711
  Serious: Yes (Other)
  Sender: FDA-Public Use
  Company Number: TW-PFIZER INC-2019186947

PATIENT
  Age: 2 Year
  Sex: Female

DRUGS (1)
  1. BENEFIX [Suspect]
     Active Substance: COAGULATION FACTOR IX RECOMBINANT HUMAN\ISOPROPYL ALCOHOL
     Indication: HAEMOPHILIA
     Dosage: 500 IU, AS NEEDED(ON DEMAND USE)
     Route: 042
     Dates: start: 2018

REACTIONS (4)
  - Contusion [Recovering/Resolving]
  - Haematoma [Recovering/Resolving]
  - Enterovirus infection [Recovering/Resolving]
  - Fall [Recovering/Resolving]

NARRATIVE: CASE EVENT DATE: 201904
